FAERS Safety Report 4502792-X (Version None)
Quarter: 2004Q4

REPORT INFORMATION
  Report Type: 
  Country: None (occurrence: None)
  Receive Date: 20041116
  Receipt Date: 20041116
  Transmission Date: 20050328
  Serious: Yes (Life-Threatening, Hospitalization, Disabling)
  Sender: FDA-Public Use
  Company Number: None

PATIENT
  Age: 44 Year
  Sex: Female
  Weight: 68.0396 kg

DRUGS (13)
  1. ENBREL [Suspect]
     Indication: SYSTEMIC LUPUS ERYTHEMATOSUS
     Dosage: 25MG TWICE WEEKLY SUBCUTANEO
     Route: 058
     Dates: start: 20030530, end: 20040612
  2. PREDNISONE [Concomitant]
  3. METHOTREXATE [Concomitant]
  4. WELLBUTRIN [Concomitant]
  5. ELAVIL [Concomitant]
  6. PLAQUENIL [Concomitant]
  7. PRILOSEC [Concomitant]
  8. ZOFRAN [Concomitant]
  9. ATIVAN [Concomitant]
  10. COMPAZINE [Concomitant]
  11. MINOCYCLINE HCL [Concomitant]
  12. ULTRAM [Concomitant]
  13. ALBUTEROL [Concomitant]

REACTIONS (29)
  - ASTHENIA [None]
  - BACK PAIN [None]
  - CEREBRAL DISORDER [None]
  - COGNITIVE DISORDER [None]
  - CONFUSIONAL STATE [None]
  - DEPRESSION [None]
  - ENCEPHALITIS [None]
  - FATIGUE [None]
  - GAIT DISTURBANCE [None]
  - HEADACHE [None]
  - HYPOAESTHESIA [None]
  - INCONTINENCE [None]
  - MALAISE [None]
  - MIGRAINE [None]
  - MOTOR DYSFUNCTION [None]
  - MULTIPLE SCLEROSIS [None]
  - MUSCLE CONTRACTIONS INVOLUNTARY [None]
  - MUSCLE SPASTICITY [None]
  - NECK PAIN [None]
  - NEUROPATHIC PAIN [None]
  - OPHTHALMOPLEGIA [None]
  - PARAESTHESIA [None]
  - PHOTOPHOBIA [None]
  - PRURITUS [None]
  - PUPILLARY REFLEX IMPAIRED [None]
  - SPEECH DISORDER [None]
  - TEMPERATURE INTOLERANCE [None]
  - TREMOR [None]
  - VISION BLURRED [None]
